FAERS Safety Report 6475779-8 (Version None)
Quarter: 2009Q4

REPORT INFORMATION
  Report Type: 
  Country: None (occurrence: None)
  Receive Date: 20091204
  Receipt Date: 20091201
  Transmission Date: 20100525
  Serious: Yes (Death)
  Sender: FDA-Public Use
  Company Number: US-ABBOTT-09P-163-0610488-00

PATIENT
  Age: 52 Year
  Sex: Male

DRUGS (1)
  1. HUMIRA [Suspect]
     Indication: RHEUMATOID ARTHRITIS
     Dates: start: 20080201

REACTIONS (4)
  - OEDEMA PERIPHERAL [None]
  - PAIN IN EXTREMITY [None]
  - SUDDEN DEATH [None]
  - SYNOVITIS [None]
